FAERS Safety Report 8362518-9 (Version None)
Quarter: 2012Q2

REPORT INFORMATION
  Report Type: 
  Country: None (occurrence: None)
  Receive Date: 20120516
  Receipt Date: 20120508
  Transmission Date: 20120825
  Serious: Yes (Hospitalization)
  Sender: FDA-Public Use
  Company Number: US-ELI_LILLY_AND_COMPANY-US201205003717

PATIENT
  Sex: Female

DRUGS (2)
  1. HUMALOG MIX 75/25 [Suspect]
     Indication: DIABETES MELLITUS
     Dosage: 48 U, EACH MORNING
  2. HUMALOG MIX 75/25 [Suspect]
     Dosage: 10 U, EACH EVENING

REACTIONS (4)
  - BLOOD GLUCOSE INCREASED [None]
  - HIP ARTHROPLASTY [None]
  - GAIT DISTURBANCE [None]
  - INCORRECT DOSE ADMINISTERED [None]
